FAERS Safety Report 8399664-X (Version None)
Quarter: 2012Q2

REPORT INFORMATION
  Report Type: 
  Country: None (occurrence: None)
  Receive Date: 20120323
  Receipt Date: 20110906
  Transmission Date: 20120825
  Serious: Yes (Hospitalization)
  Sender: FDA-Public Use
  Company Number: 163-21880-11072306

PATIENT
  Age: 66 Year
  Sex: Male
  Weight: 61.6892 kg

DRUGS (9)
  1. PEPTO BISMOL (BISMUTH SUBSALICYLATE) (UNKNOWN) [Concomitant]
  2. XIFAXIN (RIFAXIMIN) (UNKNOWN) [Concomitant]
  3. ZOFRAN [Concomitant]
  4. VANCOMYCIN [Concomitant]
  5. WARFARIN SODIUM [Concomitant]
  6. ACYCLOVIR (ACICLOVIR)(UNKNOWN) [Concomitant]
  7. REVLIMID [Suspect]
     Indication: MULTIPLE MYELOMA
     Dosage: 25 MG, QD X 21 DAYS, THEN 7 DAYS OFF, PO
     Route: 048
     Dates: start: 20110523, end: 20110613
  8. OXYCODONE (OXYCODONE) (UNKNOWN) [Concomitant]
  9. PEPCID AC ( FAMOTIDINE ) (UNKNOWN) [Concomitant]

REACTIONS (4)
  - HYPOTENSION [None]
  - BLOOD COUNT ABNORMAL [None]
  - DIARRHOEA [None]
  - DEEP VEIN THROMBOSIS [None]
